FAERS Safety Report 23649157 (Version 1)
Quarter: 2024Q1

REPORT INFORMATION
  Report Type: Spontaneous
  Country: US (occurrence: US)
  Receive Date: 20240319
  Receipt Date: 20240319
  Transmission Date: 20240410
  Serious: No
  Sender: FDA-Public Use
  Company Number: US-MARINUS PHARMACEUTICALS, INC.-MAR2024000023

PATIENT

DRUGS (1)
  1. ZTALMY [Suspect]
     Active Substance: GANAXOLONE
     Indication: Epilepsy
     Dosage: 12 MILLILITER, TID
     Route: 048
     Dates: start: 202210

REACTIONS (2)
  - Vomiting [Unknown]
  - Product dose omission issue [Unknown]
